FAERS Safety Report 5269778-1 (Version None)
Quarter: 2007Q1

REPORT INFORMATION
  Report Type: 
  Country: None (occurrence: None)
  Receive Date: 20061218
  Receipt Date: 20060928
  Transmission Date: 20070707
  Serious: Yes (Other)
  Sender: FDA-Public Use
  Company Number: US200609007273

PATIENT
  Age: 51 Year
  Sex: Female

DRUGS (7)
  1. HUMULIN R [Suspect]
     Indication: DIABETES MELLITUS
     Dates: start: 19960101
  2. HUMULIN R [Suspect]
     Indication: DIABETES MELLITUS
     Dates: start: 19960101
  3. ... [Suspect]
  4. HUMULIN N [Suspect]
     Indication: DIABETES MELLITUS
     Dosage: SEE IMAGE
     Dates: start: 19960101
  5. HUMALOG [Suspect]
     Indication: DIABETES MELLITUS
     Dosage: 10 U, 3/D
     Dates: start: 20060928
  6. ILETIN [Suspect]
     Indication: DIABETES MELLITUS
  7. ILETIN [Suspect]
     Indication: DIABETES MELLITUS

REACTIONS (16)
  - BLOOD GLUCOSE DECREASED [None]
  - BLOOD GLUCOSE INCREASED [None]
  - CONTUSION [None]
  - FALL [None]
  - HYPERKERATOSIS [None]
  - HYPERSENSITIVITY [None]
  - LIMB INJURY [None]
  - LOSS OF CONSCIOUSNESS [None]
  - MASS [None]
  - MOBILITY DECREASED [None]
  - PAIN [None]
  - PAIN IN EXTREMITY [None]
  - SKIN DISORDER [None]
  - TRIGGER FINGER [None]
  - URTICARIA [None]
  - VEIN DISORDER [None]
